FAERS Safety Report 7628495-0 (Version None)
Quarter: 2011Q3

REPORT INFORMATION
  Report Type: 
  Country: None (occurrence: None)
  Receive Date: 20110705
  Receipt Date: 20110621
  Transmission Date: 20111222
  Serious: Yes (Other)
  Sender: FDA-Public Use
  Company Number: 2011029045

PATIENT
  Age: 8 Year
  Sex: Male
  Weight: 24.4942 kg

DRUGS (4)
  1. NASONEX (MOMETASONE FURAOATE) [Concomitant]
  2. LORATADINE [Concomitant]
  3. HIZENTRA [Suspect]
     Indication: COMBINED IMMUNODEFICIENCY
     Dosage: 4 G 1X/WEEK, 20 ML WEEKLY SUBCUTANEOUS
     Route: 058
     Dates: start: 20110205
  4. HYDROXYZINE [Concomitant]

REACTIONS (2)
  - INFUSION SITE ERYTHEMA [None]
  - INFUSION SITE INFECTION [None]
